FAERS Safety Report 10565888 (Version 1)
Quarter: 2014Q4

REPORT INFORMATION
  Report Type: Spontaneous
  Country: US (occurrence: US)
  Receive Date: 20141105
  Receipt Date: 20141105
  Transmission Date: 20150529
  Serious: Yes (Other)
  Sender: FDA-Public Use
  Company Number: US-UCBSA-2014016808

PATIENT
  Age: 7 Year
  Sex: Male

DRUGS (1)
  1. KEPPRA [Suspect]
     Active Substance: LEVETIRACETAM
     Indication: SEIZURE
     Dosage: UNK

REACTIONS (5)
  - Anger [Unknown]
  - Dizziness [Unknown]
  - Somnolence [Unknown]
  - Seizure [Unknown]
  - Streptococcal infection [Recovering/Resolving]
